FAERS Safety Report 11052313 (Version 1)
Quarter: 2015Q2

REPORT INFORMATION
  Report Type: Spontaneous
  Country: BR (occurrence: BR)
  Receive Date: 20150421
  Receipt Date: 20150421
  Transmission Date: 20150821
  Serious: Yes (Other)
  Sender: FDA-Public Use
  Company Number: PHHY2015BR031034

PATIENT
  Age: 61 Year
  Sex: Female
  Weight: 80 kg

DRUGS (4)
  1. ZOMETA [Suspect]
     Active Substance: ZOLEDRONIC ACID
     Indication: PLASMA CELL MYELOMA
     Dosage: EVERY 28 DAYS
     Route: 065
     Dates: start: 20100105, end: 201008
  2. VELCADE [Suspect]
     Active Substance: BORTEZOMIB
     Indication: PRODUCT USED FOR UNKNOWN INDICATION
     Dosage: EVERY 5 DAYS
     Route: 065
     Dates: start: 20100122, end: 20100522
  3. ZOMETA [Suspect]
     Active Substance: ZOLEDRONIC ACID
     Dosage: EVERY 28 DAYS
     Route: 065
     Dates: start: 201012, end: 20130525
  4. TRAMAL [Concomitant]
     Active Substance: TRAMADOL
     Indication: PRODUCT USED FOR UNKNOWN INDICATION
     Dosage: BID
     Route: 065

REACTIONS (7)
  - Wound complication [Recovered/Resolved]
  - Tooth disorder [Recovering/Resolving]
  - Inflammation [Unknown]
  - Nervousness [Recovering/Resolving]
  - Osteonecrosis of jaw [Unknown]
  - Wound [Recovering/Resolving]
  - Fear [Recovering/Resolving]

NARRATIVE: CASE EVENT DATE: 20120503
